FAERS Safety Report 22377965 (Version 1)
Quarter: 2023Q2

REPORT INFORMATION
  Report Type: Spontaneous
  Country: CH (occurrence: CH)
  Receive Date: 20230529
  Receipt Date: 20230529
  Transmission Date: 20230722
  Serious: Yes (Disabling)
  Sender: FDA-Public Use
  Company Number: CH-SM-2023-12941

PATIENT
  Age: 30 Year
  Sex: Female
  Weight: 58 kg

DRUGS (3)
  1. OCREVUS [Suspect]
     Active Substance: OCRELIZUMAB
     Indication: Multiple sclerosis
     Dosage: INFUSION OCCURRED EVERY 6 MONTHS.
     Route: 042
     Dates: start: 20151117, end: 20230424
  2. NOVALGIN (METAMIZOLE SODIUM) [Concomitant]
     Active Substance: METAMIZOLE SODIUM
     Indication: Migraine
     Dosage: 2-3X 20 DROPS OCCASIONALLY
     Route: 048
     Dates: start: 2015
  3. NABIXIMOLS [Concomitant]
     Active Substance: NABIXIMOLS
     Dosage: DOSE UNKNOWN, PATIENT TAKES SATIVEX ONCE DAILY IN THE EVENING
     Dates: start: 2022

REACTIONS (2)
  - Tooth injury [Not Recovered/Not Resolved]
  - Gingivitis [Not Recovered/Not Resolved]

NARRATIVE: CASE EVENT DATE: 20221111
